FAERS Safety Report 7970458-X (Version None)
Quarter: 2011Q4

REPORT INFORMATION
  Report Type: 
  Country: None (occurrence: None)
  Receive Date: 20111212
  Receipt Date: 20111201
  Transmission Date: 20120403
  Serious: Yes (Hospitalization)
  Sender: FDA-Public Use
  Company Number: PHHY2011AU80828

PATIENT
  Sex: Male

DRUGS (2)
  1. CLOZARIL [Suspect]
     Dosage: 450MG
     Dates: start: 20110802
  2. CLOZARIL [Suspect]
     Dosage: 500 MG, UNK
     Dates: start: 20111201

REACTIONS (2)
  - SCHIZOPHRENIA [None]
  - SCHIZOAFFECTIVE DISORDER [None]
